FAERS Safety Report 11851961 (Version 1)
Quarter: 2015Q4

REPORT INFORMATION
  Report Type: Report from Study
  Country: IT (occurrence: IT)
  Receive Date: 20151218
  Receipt Date: 20151218
  Transmission Date: 20160305
  Serious: Yes (Death, Hospitalization)
  Sender: FDA-Public Use
  Company Number: IT-ASTRAZENECA-2014SE97093

PATIENT
  Age: 80 Year
  Sex: Female
  Weight: 53 kg

DRUGS (1)
  1. TREMELIMUMAB CODE NOT BROKEN [Suspect]
     Active Substance: TREMELIMUMAB
     Indication: MESOTHELIOMA MALIGNANT
     Dosage: 10 MG/KG, DOSE RECEIVED 530 MG, EVERY FOUR WEEKS
     Route: 042
     Dates: start: 20141006, end: 20141201

REACTIONS (5)
  - Hypothyroidism [Not Recovered/Not Resolved]
  - Diarrhoea [Not Recovered/Not Resolved]
  - Adrenal insufficiency [Not Recovered/Not Resolved]
  - Dehydration [Not Recovered/Not Resolved]
  - Lung infection [Fatal]

NARRATIVE: CASE EVENT DATE: 20141215
